FAERS Safety Report 6633888-4 (Version None)
Quarter: 2010Q1

REPORT INFORMATION
  Report Type: 
  Country: None (occurrence: None)
  Receive Date: 20100309
  Receipt Date: 20100222
  Transmission Date: 20100710
  Serious: Yes (Hospitalization)
  Sender: FDA-Public Use
  Company Number: 2010000638

PATIENT
  Age: 63 Year
  Sex: Male
  Weight: 51 kg

DRUGS (6)
  1. ERLOTINIB HYDROCHLORIDE [Suspect]
     Indication: LUNG SQUAMOUS CELL CARCINOMA STAGE UNSPECIFIED
     Dosage: (150 MG,QD) ,ORAL ; (100 MG, QD), ORAL
     Route: 048
     Dates: start: 20090326, end: 20090429
  2. ERLOTINIB HYDROCHLORIDE [Suspect]
     Indication: LUNG SQUAMOUS CELL CARCINOMA STAGE UNSPECIFIED
     Dosage: (150 MG,QD) ,ORAL ; (100 MG, QD), ORAL
     Route: 048
     Dates: start: 20090209, end: 20090609
  3. ERLOTINIB HYDROCHLORIDE [Suspect]
     Indication: LUNG SQUAMOUS CELL CARCINOMA STAGE UNSPECIFIED
     Dosage: (150 MG,QD) ,ORAL ; (100 MG, QD), ORAL
     Route: 048
     Dates: start: 20090519, end: 20090609
  4. NORVASC [Concomitant]
  5. CODEINE  PHOSPHATE (CODEINE PHOSPHATE) [Concomitant]
  6. ADONA (CARBAZOCHROME SODIUM SULFONATE) [Concomitant]

REACTIONS (11)
  - ATELECTASIS [None]
  - FLUID INTAKE REDUCED [None]
  - HYPOPHAGIA [None]
  - LIVER FUNCTION TEST ABNORMAL [None]
  - LUNG SQUAMOUS CELL CARCINOMA STAGE UNSPECIFIED [None]
  - MALIGNANT NEOPLASM PROGRESSION [None]
  - MUCOSAL HAEMORRHAGE [None]
  - PNEUMONIA [None]
  - RASH [None]
  - SKIN DISORDER [None]
  - STOMATITIS [None]
